FAERS Safety Report 12212395 (Version 1)
Quarter: 2016Q1

REPORT INFORMATION
  Report Type: Spontaneous
  Country: US (occurrence: US)
  Receive Date: 20160326
  Receipt Date: 20160326
  Transmission Date: 20160526
  Serious: Yes (Life-Threatening, Hospitalization, Other)
  Sender: FDA-Public Use
  Company Number: US-BRISTOL-MYERS SQUIBB COMPANY-BMS-2016-020772

PATIENT
  Age: 60 Year
  Sex: Male

DRUGS (4)
  1. COLCHICINE. [Interacting]
     Active Substance: COLCHICINE
     Indication: PRODUCT USED FOR UNKNOWN INDICATION
     Dosage: UNK, TID
     Route: 065
  2. PRAVASTATIN SODIUM. [Suspect]
     Active Substance: PRAVASTATIN SODIUM
     Indication: PRODUCT USED FOR UNKNOWN INDICATION
     Route: 065
  3. CICLOSPORIN [Interacting]
     Active Substance: CYCLOSPORINE
     Indication: PRODUCT USED FOR UNKNOWN INDICATION
     Route: 065
  4. COLCHICINE. [Interacting]
     Active Substance: COLCHICINE
     Dosage: 0.6 MG, BID
     Route: 065

REACTIONS (5)
  - Metabolic acidosis [Recovering/Resolving]
  - Dialysis [Unknown]
  - Multiple organ dysfunction syndrome [Recovering/Resolving]
  - Drug interaction [Unknown]
  - Respiratory acidosis [Recovering/Resolving]
